FAERS Safety Report 6897036-8 (Version None)
Quarter: 2010Q3

REPORT INFORMATION
  Report Type: 
  Country: None (occurrence: None)
  Receive Date: 20100802
  Receipt Date: 20070311
  Transmission Date: 20110219
  Serious: No
  Sender: FDA-Public Use
  Company Number: US-PFIZER INC-2007020782

PATIENT
  Sex: Female
  Weight: 70.3 kg

DRUGS (2)
  1. LYRICA [Suspect]
     Indication: FIBROMYALGIA
     Dates: start: 20061001
  2. VICODIN [Concomitant]
     Dates: start: 20030101

REACTIONS (5)
  - AGITATION [None]
  - BLOOD CHOLESTEROL INCREASED [None]
  - ENERGY INCREASED [None]
  - EUPHORIC MOOD [None]
  - WEIGHT INCREASED [None]
